FAERS Safety Report 6145393-2 (Version None)
Quarter: 2009Q2

REPORT INFORMATION
  Report Type: 
  Country: None (occurrence: None)
  Receive Date: 20090402
  Receipt Date: 20090323
  Transmission Date: 20091009
  Serious: Yes (Hospitalization)
  Sender: FDA-Public Use
  Company Number: DSU-2009-00722

PATIENT
  Age: 57 Year
  Sex: Female
  Weight: 81.6475 kg

DRUGS (3)
  1. BENICAR HCT [Suspect]
     Indication: HYPERTENSION
     Dosage: 40/25 MG 9AD), PER ORAL
     Route: 048
     Dates: end: 20090301
  2. TOPROL XL (METOPROLOL SUCCINATE) (100 MILLIGRAM) (METOPROLOL SUCCINATE [Concomitant]
  3. UNSPECIFIED HYPERTENSION MEDICATION (ANTIHYPERTENSIVES) [Concomitant]

REACTIONS (3)
  - COELIAC DISEASE [None]
  - DIARRHOEA [None]
  - VOMITING [None]
